FAERS Safety Report 11684875 (Version 2)
Quarter: 2015Q4

REPORT INFORMATION
  Report Type: Spontaneous
  Country: US (occurrence: US)
  Receive Date: 20151030
  Receipt Date: 20151201
  Transmission Date: 20160304
  Serious: Yes (Death, Hospitalization, Other)
  Sender: FDA-Public Use
  Company Number: US-HOSPIRA-3056595

PATIENT
  Age: 63 Year
  Sex: Male
  Weight: 79.2 kg

DRUGS (15)
  1. LIALDA [Concomitant]
     Active Substance: MESALAMINE
     Indication: CROHN^S DISEASE
     Dosage: DAILY
     Route: 048
     Dates: start: 201402
  2. VALTREX [Concomitant]
     Active Substance: VALACYCLOVIR HYDROCHLORIDE
     Indication: INFECTION PROPHYLAXIS
     Route: 048
     Dates: start: 20140710
  3. TYLENOL [Concomitant]
     Active Substance: ACETAMINOPHEN
     Indication: PAIN
     Route: 048
     Dates: start: 201311
  4. SALICYLIC ACID. [Concomitant]
     Active Substance: SALICYLIC ACID
     Indication: PSORIASIS
     Dosage: 3-6% APPLICATION, DAILY
     Route: 061
     Dates: start: 201311
  5. VITAMIN B12 [Concomitant]
     Active Substance: CYANOCOBALAMIN
     Indication: VITAMIN B12 DEFICIENCY
     Dosage: DAILY
     Route: 048
     Dates: start: 201311, end: 20140819
  6. MOXIFLOXACIN. [Concomitant]
     Active Substance: MOXIFLOXACIN
     Indication: INFECTION PROPHYLAXIS
     Dosage: DAILY
     Route: 048
     Dates: start: 20140710
  7. INVESTIGATIONAL DRUG [Suspect]
     Active Substance: INVESTIGATIONAL PRODUCT
     Indication: MYELODYSPLASTIC SYNDROME
     Dosage: DAYS 1-28 CONTINUOUS
     Route: 048
     Dates: start: 20140701
  8. CALCIUM CITRATE W/ERGOCALCIFEROL [Concomitant]
     Indication: HYPOVITAMINOSIS
     Dosage: 315/200 MG
     Route: 048
     Dates: start: 201311
  9. CYTARABINE. [Suspect]
     Active Substance: CYTARABINE
     Indication: MYELODYSPLASTIC SYNDROME
     Dosage: TWICE DAILY, MORNING AND EVENING, 12 HOURS APART, ON DAYS 1-10 OF EACH 28-DAY CYCLE
     Route: 058
     Dates: start: 20140701
  10. SENNA                              /00142201/ [Concomitant]
     Active Substance: SENNA LEAF
     Indication: CONSTIPATION
     Route: 048
     Dates: start: 20140820
  11. COLECALCIFEROL [Concomitant]
     Active Substance: CHOLECALCIFEROL
     Indication: HYPOVITAMINOSIS
     Dosage: DAILY
     Route: 048
     Dates: start: 201311
  12. VORICONAZOLE. [Concomitant]
     Active Substance: VORICONAZOLE
     Indication: INFECTION PROPHYLAXIS
     Route: 048
     Dates: start: 20140826
  13. PERCOCET                           /00446701/ [Concomitant]
     Active Substance: ACETAMINOPHEN\OXYCODONE HYDROCHLORIDE\OXYCODONE TEREPHTHALATE
     Indication: BONE PAIN
     Dosage: 5/325 MG
     Route: 048
     Dates: start: 201311
  14. PROTONIX                           /00661201/ [Concomitant]
     Active Substance: OMEPRAZOLE
     Indication: PROPHYLAXIS
     Route: 048
  15. LISINOPRIL. [Concomitant]
     Active Substance: LISINOPRIL
     Indication: HYPERTENSION
     Dosage: DAILY
     Route: 048
     Dates: start: 201311

REACTIONS (7)
  - Crohn^s disease [Recovered/Resolved]
  - Headache [Recovered/Resolved]
  - Disease progression [Fatal]
  - Syncope [Recovered/Resolved]
  - Clostridium difficile infection [Recovered/Resolved]
  - Hypovolaemia [Recovered/Resolved]
  - Anaemia [Recovered/Resolved]

NARRATIVE: CASE EVENT DATE: 20140827
